FAERS Safety Report 5344098-5 (Version None)
Quarter: 2007Q2

REPORT INFORMATION
  Report Type: 
  Country: None (occurrence: None)
  Receive Date: 20070604
  Receipt Date: 20070529
  Transmission Date: 20071010
  Serious: Yes (Hospitalization)
  Sender: FDA-Public Use
  Company Number: B0473074A

PATIENT
  Age: 83 Year
  Sex: Male

DRUGS (4)
  1. ZOVIRAX [Suspect]
     Indication: HERPES OPHTHALMIC
     Route: 047
     Dates: start: 20070101, end: 20070101
  2. ZELITREX [Suspect]
     Indication: HERPES OPHTHALMIC
     Route: 048
     Dates: start: 20070101
  3. TANGANIL [Concomitant]
     Indication: DIZZINESS
     Route: 065
  4. PATCH (UNSPECIFIED) [Concomitant]
     Route: 062

REACTIONS (3)
  - MEDICATION ERROR [None]
  - NAUSEA [None]
  - VOMITING [None]
